FAERS Safety Report 21821501 (Version 2)
Quarter: 2023Q4

REPORT INFORMATION
  Report Type: Report from Study
  Country: US (occurrence: US)
  Receive Date: 20230105
  Receipt Date: 20231205
  Transmission Date: 20240110
  Serious: Yes (Hospitalization, Other)
  Sender: FDA-Public Use
  Company Number: US-ABBVIE-4257945

PATIENT
  Sex: Female

DRUGS (4)
  1. SKYRIZI [Suspect]
     Active Substance: RISANKIZUMAB-RZAA
     Indication: Psoriasis
     Dosage: WEEK 0, ?LAST ADMIN DATE- OCT 2022
     Route: 058
     Dates: start: 20221002
  2. SKYRIZI [Suspect]
     Active Substance: RISANKIZUMAB-RZAA
     Indication: Psoriasis
     Dosage: WEEK 0?STRENGTH:150MG/ML
     Route: 058
     Dates: start: 20231028, end: 20231028
  3. SKYRIZI [Suspect]
     Active Substance: RISANKIZUMAB-RZAA
     Indication: Arthritis
     Dosage: WEEK 4 EVERY 12 WEEKS THEREAFTER?STRENGTH:150MG/ML
     Route: 058
     Dates: start: 20231125
  4. SKYRIZI [Suspect]
     Active Substance: RISANKIZUMAB-RZAA
     Dosage: FIRST ADMIN DATE- OCT 2022??WEEK 4, EVERY 12 WEEKS
     Route: 058

REACTIONS (10)
  - Atrioventricular block [Unknown]
  - Gastroenteritis viral [Recovered/Resolved]
  - Coronary artery occlusion [Unknown]
  - Varicose vein [Unknown]
  - Knee operation [Unknown]
  - Gastric infection [Unknown]
  - Chest pain [Unknown]
  - Therapeutic product effect delayed [Unknown]
  - Colitis [Unknown]
  - Colitis [Recovered/Resolved]

NARRATIVE: CASE EVENT DATE: 20220101
